FAERS Safety Report 21246810 (Version 2)
Quarter: 2022Q4

REPORT INFORMATION
  Report Type: Report from Study
  Country: US (occurrence: None)
  Receive Date: 20220824
  Receipt Date: 20221104
  Transmission Date: 20230112
  Serious: Yes (Other)
  Sender: FDA-Public Use
  Company Number: US-ROCHE-3149681

PATIENT
  Age: 63 Year
  Sex: Male
  Weight: 99 kg

DRUGS (11)
  1. RANIBIZUMAB [Suspect]
     Active Substance: RANIBIZUMAB
     Indication: Diabetic retinal oedema
     Dosage: DRUG DOSE FIRST ADMINISTERED WAS 10 MG/ML?ON 29/JUN/2022, HE RECEIVED DOSE LAST STUDY DRUG ADMIN PRI
     Route: 050
     Dates: start: 20210412
  2. RANIBIZUMAB [Suspect]
     Active Substance: RANIBIZUMAB
     Dosage: DATE OF DEVICE DEFICIENCY 27/JUL/2022
  3. RANIBIZUMAB [Suspect]
     Active Substance: RANIBIZUMAB
  4. RANIBIZUMAB [Suspect]
     Active Substance: RANIBIZUMAB
  5. RANIBIZUMAB [Suspect]
     Active Substance: RANIBIZUMAB
  6. INSULIN GLARGINE [Concomitant]
     Active Substance: INSULIN GLARGINE
     Indication: Type 2 diabetes mellitus
     Route: 058
     Dates: start: 2000
  7. ATORVASTATIN [Concomitant]
     Active Substance: ATORVASTATIN
     Indication: Hyperlipidaemia
     Dosage: 20 MG/ML
     Route: 048
     Dates: start: 2010
  8. LISINOPRIL [Concomitant]
     Active Substance: LISINOPRIL
     Indication: Hypertension
     Dosage: 5 MG/ML
     Route: 048
     Dates: start: 2001
  9. OFLOXACIN [Concomitant]
     Active Substance: OFLOXACIN
     Dates: start: 20210728
  10. OFLOXACIN [Concomitant]
     Active Substance: OFLOXACIN
     Dates: start: 20220628, end: 20220705
  11. METFORMIN [Concomitant]
     Active Substance: METFORMIN HYDROCHLORIDE
     Indication: Type 2 diabetes mellitus
     Dosage: 500 MG/ML
     Dates: start: 2000

REACTIONS (2)
  - Device issue [Unknown]
  - No adverse event [Unknown]

NARRATIVE: CASE EVENT DATE: 20220727
